FAERS Safety Report 21311483 (Version 1)
Quarter: 2022Q3

REPORT INFORMATION
  Report Type: Spontaneous
  Country: FR (occurrence: FR)
  Receive Date: 20220909
  Receipt Date: 20220909
  Transmission Date: 20221027
  Serious: Yes (Death, Life-Threatening, Other)
  Sender: FDA-Public Use
  Company Number: FR-AMGEN-FRASP2022152448

PATIENT

DRUGS (4)
  1. PEGFILGRASTIM [Suspect]
     Active Substance: PEGFILGRASTIM
     Indication: Prophylaxis
     Dosage: 6 MILLIGRAM, DAY 2
     Route: 058
  2. DOXORUBICIN [Concomitant]
     Active Substance: DOXORUBICIN
     Indication: Leiomyosarcoma
     Dosage: 75 MILLIGRAM/SQ. METER, Q3WK
  3. TRABECTEDIN [Concomitant]
     Active Substance: TRABECTEDIN
     Indication: Leiomyosarcoma
     Dosage: 1 MILLIGRAM/SQ. METER
  4. DEXAMETHASONE [Concomitant]
     Active Substance: DEXAMETHASONE
     Dosage: 20 MILLIGRAM

REACTIONS (45)
  - Death [Fatal]
  - Leiomyosarcoma recurrent [Fatal]
  - Febrile neutropenia [Unknown]
  - Neutropenia [Unknown]
  - Aspartate aminotransferase increased [Unknown]
  - Anaemia [Unknown]
  - Thrombocytopenia [Unknown]
  - Adverse event [Unknown]
  - Leukopenia [Unknown]
  - Alanine aminotransferase increased [Unknown]
  - Faecaloma [Unknown]
  - Gamma-glutamyltransferase increased [Unknown]
  - Shock haemorrhagic [Unknown]
  - Vomiting [Unknown]
  - Acute myeloid leukaemia [Unknown]
  - Mucosal inflammation [Unknown]
  - Intestinal obstruction [Unknown]
  - Oesophageal ulcer [Unknown]
  - Septic shock [Unknown]
  - Cardiotoxicity [Unknown]
  - Pancytopenia [Unknown]
  - Lymphopenia [Unknown]
  - Dyspnoea [Unknown]
  - Constipation [Unknown]
  - Diarrhoea [Unknown]
  - Enteritis [Unknown]
  - Nausea [Unknown]
  - Decreased appetite [Unknown]
  - Device related infection [Unknown]
  - Blood creatine phosphokinase increased [Unknown]
  - Fatigue [Unknown]
  - Pain [Unknown]
  - Pyrexia [Unknown]
  - Infection [Unknown]
  - Blood alkaline phosphatase increased [Unknown]
  - Depression [Unknown]
  - Blood bilirubin increased [Unknown]
  - Creatinine renal clearance decreased [Unknown]
  - Sepsis [Unknown]
  - Rhabdomyolysis [Unknown]
  - Lung disorder [Unknown]
  - Cough [Unknown]
  - Toxicity to various agents [Unknown]
  - Dysgeusia [Unknown]
  - Left ventricular dysfunction [Unknown]
